FAERS Safety Report 24439629 (Version 1)
Quarter: 2024Q4

REPORT INFORMATION
  Report Type: Spontaneous
  Country: US (occurrence: None)
  Receive Date: 20241015
  Receipt Date: 20241015
  Transmission Date: 20250115
  Serious: Yes (Death)
  Sender: Public
  Company Number: None

PATIENT
  Age: 77 Year
  Sex: Male
  Weight: 95.4 kg

DRUGS (12)
  1. POMALYST [Suspect]
     Active Substance: POMALIDOMIDE
     Indication: Plasma cell myeloma
     Dosage: FREQUENCY : DAILY;?
     Route: 048
     Dates: end: 20241010
  2. ATORVASTATIN [Concomitant]
     Active Substance: ATORVASTATIN
  3. CANDESARTAN CILEXETIL 32 MG TB [Concomitant]
  4. CEFUROXIME AXETIL [Concomitant]
     Active Substance: CEFUROXIME AXETIL
  5. clobetasol 0.05 % topical ointment [Concomitant]
  6. docusate sodium 100 mg capsule [Concomitant]
  7. ELIQUIS [Concomitant]
     Active Substance: APIXABAN
  8. FLUTICASONE PROP 50 MCG SPRA [Concomitant]
  9. HYDROCHLOROTHIAZIDE 25 MG TA [Concomitant]
  10. hydrocortisone 2.5 % lotion [Concomitant]
  11. METOPROLOL SUCCINATE [Concomitant]
     Active Substance: METOPROLOL SUCCINATE
  12. TAMSULOSIN HYDROCHLORIDE [Concomitant]
     Active Substance: TAMSULOSIN HYDROCHLORIDE

REACTIONS (1)
  - Death [None]

NARRATIVE: CASE EVENT DATE: 20241010
